FAERS Safety Report 8265593-5 (Version None)
Quarter: 2012Q2

REPORT INFORMATION
  Report Type: 
  Country: None (occurrence: None)
  Receive Date: 20120403
  Receipt Date: 20120320
  Transmission Date: 20120825
  Serious: Yes (Hospitalization, Other)
  Sender: FDA-Public Use
  Company Number: DSJ-2011-11669

PATIENT
  Age: 5 Decade
  Sex: Female

DRUGS (11)
  1. EZETIMIBE/SAMVASTATIN [Suspect]
     Indication: HYPERCHOLESTEROLAEMIA
     Dosage: 10MG/20MG, PER ORAL
     Route: 048
     Dates: start: 20110601
  2. SERTRALINE HYDROCHLORIDE [Concomitant]
  3. LEVOMEPROMAZINE (LEVOMEPROMAZINE) (LEVOMEPROMAZINE) [Concomitant]
  4. GLYCINE MAX (GLYCINE MAX) (GLYCINE MAX) [Concomitant]
  5. DIAZEPAM [Concomitant]
  6. BENICAR [Suspect]
     Indication: HYPERTENSION
     Dosage: 20 MG (20 MG, 1 IN 1 D), PER ORAL, 40 MG (20 MG, 2 IN 1 D), PER ORAL, 40 MG (40 MG, 1 IN 1 D), PER O
     Route: 048
     Dates: start: 20110601
  7. BENICAR [Suspect]
     Indication: HYPERTENSION
     Dosage: 20 MG (20 MG, 1 IN 1 D), PER ORAL, 40 MG (20 MG, 2 IN 1 D), PER ORAL, 40 MG (40 MG, 1 IN 1 D), PER O
     Route: 048
     Dates: start: 20110301, end: 20110601
  8. BENICAR [Suspect]
     Indication: HYPERTENSION
     Dosage: 20 MG (20 MG, 1 IN 1 D), PER ORAL, 40 MG (20 MG, 2 IN 1 D), PER ORAL, 40 MG (40 MG, 1 IN 1 D), PER O
     Route: 048
     Dates: start: 20101001, end: 20110301
  9. CLONAZEPAM [Concomitant]
  10. CARBAMAZEPINE [Concomitant]
  11. METFORMIN HCL [Concomitant]

REACTIONS (7)
  - DEPRESSION [None]
  - HYPERCHOLESTEROLAEMIA [None]
  - CONDITION AGGRAVATED [None]
  - GINGIVAL DISORDER [None]
  - HYPERAEMIA [None]
  - OEDEMA PERIPHERAL [None]
  - DRUG INEFFECTIVE [None]
